FAERS Safety Report 15273260 (Version 1)
Quarter: 2018Q3

REPORT INFORMATION
  Report Type: Spontaneous
  Country: FR (occurrence: FR)
  Receive Date: 20180813
  Receipt Date: 20180813
  Transmission Date: 20181010
  Serious: Yes (Other)
  Sender: FDA-Public Use
  Company Number: FR-ALSI-201800490

PATIENT
  Age: 72 Year
  Sex: Female
  Weight: 85 kg

DRUGS (10)
  1. TRANSULOSE (LACTULOSE; PARAFFIN; VASELINE) [Concomitant]
  2. CARBOMERE CHAUVIN 0,2%, GEL OPHTALMIQUE (CARBOMER 980) [Concomitant]
  3. XYLENE [Concomitant]
     Active Substance: XYLENE
  4. GABAPENTIN. [Concomitant]
     Active Substance: GABAPENTIN
  5. ESOMEPRAZOLE [Concomitant]
     Active Substance: ESOMEPRAZOLE
  6. OXYGEN. [Suspect]
     Active Substance: OXYGEN
     Indication: CHRONIC OBSTRUCTIVE PULMONARY DISEASE
     Route: 055
     Dates: start: 20141031
  7. ISPAGHULA [Concomitant]
     Active Substance: PLANTAGO OVATA SEED
  8. PARACETAMOL [Concomitant]
     Active Substance: ACETAMINOPHEN
  9. DEXERYL (GLYCEROL; PARAFFIN; VASELINE) [Concomitant]
  10. CARBOCISTEINE [Concomitant]
     Active Substance: CARBOCYSTEINE

REACTIONS (4)
  - Accidental exposure to product [Recovering/Resolving]
  - Frostbite [Recovering/Resolving]
  - Device leakage [Recovering/Resolving]
  - Burns second degree [Recovering/Resolving]
